FAERS Safety Report 25850584 (Version 2)
Quarter: 2025Q4

REPORT INFORMATION
  Report Type: Report from Study
  Country: US (occurrence: US)
  Receive Date: 20250926
  Receipt Date: 20251029
  Transmission Date: 20260117
  Serious: Yes (Other)
  Sender: TAKEDA
  Company Number: US-TAKEDA-2025TUS083035

PATIENT
  Age: 49 Year
  Sex: Male

DRUGS (43)
  1. TEDUGLUTIDE [Suspect]
     Active Substance: TEDUGLUTIDE
     Indication: Short-bowel syndrome
     Dosage: 3.8 MILLIGRAM, QD
     Dates: start: 20130329, end: 20190721
  2. TEDUGLUTIDE [Suspect]
     Active Substance: TEDUGLUTIDE
     Dosage: 3.8 MILLIGRAM, QD
     Dates: start: 20190728, end: 2024
  3. TEDUGLUTIDE [Suspect]
     Active Substance: TEDUGLUTIDE
     Dosage: 4.6 MILLIGRAM, QD
     Dates: start: 2024
  4. TEDUGLUTIDE [Suspect]
     Active Substance: TEDUGLUTIDE
  5. DOXYCYCLINE [Concomitant]
     Active Substance: DOXYCYCLINE
     Indication: Pneumonia
     Dosage: 100 MILLIGRAM, BID
     Dates: start: 20200111, end: 20200117
  6. ALBUTEROL [Concomitant]
     Active Substance: ALBUTEROL
     Indication: Bronchitis
     Dosage: UNK
  7. TYLENOL [Concomitant]
     Active Substance: ACETAMINOPHEN
     Indication: Bronchitis
     Dosage: 500 MILLIGRAM
  8. TYLENOL [Concomitant]
     Active Substance: ACETAMINOPHEN
     Dosage: 1000 MILLIGRAM, SINGLE
     Dates: start: 20240404, end: 20240404
  9. TYLENOL [Concomitant]
     Active Substance: ACETAMINOPHEN
     Dosage: 1000 MILLIGRAM, SINGLE
     Dates: start: 20240422, end: 20240422
  10. TYLENOL [Concomitant]
     Active Substance: ACETAMINOPHEN
     Dosage: 1000 MILLIGRAM, SINGLE
     Dates: start: 20240628, end: 20240628
  11. TESSALON [Concomitant]
     Active Substance: BENZONATATE
     Indication: Bronchitis
     Dosage: 200 MILLIGRAM, TID
     Dates: start: 20200117
  12. FLUCONAZOLE [Concomitant]
     Active Substance: FLUCONAZOLE
     Indication: Coccidioidomycosis
     Dosage: 800 MILLIGRAM, QD
     Dates: start: 202005
  13. POSACONAZOLE [Concomitant]
     Active Substance: POSACONAZOLE
     Indication: Coccidioidomycosis
     Dosage: 300 MILLIGRAM, QD
     Dates: start: 20200623, end: 2021
  14. ALBUTEROL [Concomitant]
     Active Substance: ALBUTEROL
     Indication: Pneumonia
     Dosage: UNK
     Dates: start: 20220317, end: 20220328
  15. AZITHROMYCIN [Concomitant]
     Active Substance: AZITHROMYCIN
     Indication: Pneumonia
     Dosage: 500 MILLIGRAM, SINGLE
     Dates: start: 20220317, end: 20220317
  16. AZITHROMYCIN [Concomitant]
     Active Substance: AZITHROMYCIN
     Dosage: 250 MILLIGRAM, QD
     Dates: start: 20220318, end: 20220321
  17. FLAGYL [Concomitant]
     Active Substance: METRONIDAZOLE\METRONIDAZOLE HYDROCHLORIDE
     Indication: Gastrointestinal microorganism overgrowth
     Dosage: 500 MILLIGRAM
  18. CIPROFLOXACIN [Concomitant]
     Active Substance: CIPROFLOXACIN
     Indication: Citrobacter sepsis
     Dosage: 500 MILLIGRAM, BID
     Dates: start: 20231011, end: 20231026
  19. DILAUDID [Concomitant]
     Active Substance: HYDROMORPHONE HYDROCHLORIDE
     Indication: Osteomyelitis
     Dosage: 0.5 MILLIGRAM
  20. OXYCODONE [Concomitant]
     Active Substance: OXYCODONE
     Indication: Osteomyelitis
     Dosage: 5 MILLIGRAM
  21. OXYCODONE [Concomitant]
     Active Substance: OXYCODONE
     Dosage: 5 MILLIGRAM, SINGLE
     Dates: start: 20240422, end: 20240422
  22. OXYCODONE [Concomitant]
     Active Substance: OXYCODONE
     Dosage: 5 MILLIGRAM, SINGLE
     Dates: start: 20240628, end: 20240628
  23. Cefepin [Concomitant]
     Indication: Osteomyelitis
     Dosage: 2 GRAM, TID
     Dates: start: 20231024
  24. MORPHINE [Concomitant]
     Active Substance: MORPHINE
     Indication: Osteomyelitis
     Dosage: 4 MILLIGRAM
  25. ERTAPENEM [Concomitant]
     Active Substance: ERTAPENEM
     Indication: Osteomyelitis
     Dosage: 1 GRAM, QD
     Dates: start: 20231028, end: 20231211
  26. DEXAMETHASONE SODIUM PHOSPHATE [Concomitant]
     Active Substance: DEXAMETHASONE SODIUM PHOSPHATE
     Indication: Osteomyelitis
     Dosage: 4 MILLIGRAM, QID
     Dates: start: 20231031, end: 20231031
  27. TAMSULOSIN [Concomitant]
     Active Substance: TAMSULOSIN
     Indication: Nephrolithiasis
     Dosage: 0.4 MILLIGRAM, QD
     Dates: start: 20231111, end: 20231211
  28. Marcaine adrenaline [Concomitant]
     Indication: Nephrolithiasis
     Dosage: 30 MILLILITER, SINGLE
     Dates: start: 20240404, end: 20240404
  29. Marcaine adrenaline [Concomitant]
     Dosage: 30 MILLILITER, SINGLE
     Dates: start: 20240422, end: 20240422
  30. PYRIDIUM [Concomitant]
     Active Substance: PHENAZOPYRIDINE
     Indication: Nephrolithiasis
     Dosage: 200 MILLIGRAM, SINGLE
     Dates: start: 20240404, end: 20240404
  31. PYRIDIUM [Concomitant]
     Active Substance: PHENAZOPYRIDINE
     Dosage: 200 MILLIGRAM, SINGLE
     Dates: start: 20240422, end: 20240422
  32. SODIUM CHLORIDE [Concomitant]
     Active Substance: SODIUM CHLORIDE
     Indication: Nephrolithiasis
     Dosage: 4 LITER, SINGLE
     Dates: start: 20240404, end: 20240404
  33. SODIUM CHLORIDE [Concomitant]
     Active Substance: SODIUM CHLORIDE
     Dosage: 6 LITER, SINGLE
     Dates: start: 20240422, end: 20240422
  34. FENTANYL [Concomitant]
     Active Substance: FENTANYL
     Indication: Nephrolithiasis
     Dosage: 25 MICROGRAM
     Dates: start: 20240628, end: 20240628
  35. TESTOSTERONE CYPIONATE [Concomitant]
     Active Substance: TESTOSTERONE CYPIONATE
     Indication: Supplementation therapy
     Dosage: 200 MILLIGRAM, 1/WEEK
     Dates: start: 2022, end: 20230827
  36. TESTOSTERONE CYPIONATE [Concomitant]
     Active Substance: TESTOSTERONE CYPIONATE
     Dosage: 200 MILLIGRAM, 1/WEEK
     Dates: start: 20241022
  37. METHOCARBAMOL [Concomitant]
     Active Substance: METHOCARBAMOL
     Indication: Muscle spasms
     Dosage: 750 MILLIGRAM, QID
     Dates: start: 20240827, end: 202409
  38. SILDENAFIL [Concomitant]
     Active Substance: SILDENAFIL
     Indication: Erectile dysfunction
     Dosage: 100 MILLIGRAM
  39. TRIAMCINOLONE ACETONIDE [Concomitant]
     Active Substance: TRIAMCINOLONE ACETONIDE
     Indication: Tendonitis
     Dosage: 40 MILLIGRAM, SINGLE
     Dates: start: 20250328, end: 20250328
  40. ADVIL [Concomitant]
     Active Substance: IBUPROFEN
     Indication: Tendonitis
     Dosage: 9999.9 MILLIGRAM
  41. ADVIL [Concomitant]
     Active Substance: IBUPROFEN
     Indication: Influenza like illness
     Dosage: 9999.9 MILLIGRAM
  42. COVID-19 vaccine [Concomitant]
     Indication: Prophylaxis
     Dosage: 0.5 MILLILITER, SINGLE
     Dates: start: 20250528, end: 20250528
  43. ZOFRAN [Concomitant]
     Active Substance: ONDANSETRON HYDROCHLORIDE
     Indication: Influenza like illness
     Dosage: 9999.9 MILLIGRAM

REACTIONS (1)
  - Haematochezia [Not Recovered/Not Resolved]

NARRATIVE: CASE EVENT DATE: 20200101
